FAERS Safety Report 8772337 (Version 1)
Quarter: 2012Q4

REPORT INFORMATION
  Report Type: 
  Country: HR (occurrence: HR)
  Receive Date: 20120905
  Receipt Date: 20120905
  Transmission Date: 20130627
  Serious: Yes (Life-Threatening, Hospitalization)
  Sender: FDA-Public Use
  Company Number: PHHY2012HR076696

PATIENT
  Age: 41 Year
  Sex: Female
  Weight: 81 kg

DRUGS (5)
  1. TRILEPTAL [Suspect]
     Indication: IDIOPATHIC GENERALISED EPILEPSY
     Dosage: 1.5 per 1 day(s)
     Route: 048
     Dates: start: 20120717, end: 20120725
  2. DEPAKINE CHRONO [Concomitant]
     Indication: IDIOPATHIC GENERALISED EPILEPSY
     Dosage: 500 mg (2 per 1day(s))
     Route: 048
     Dates: start: 20040430
  3. PHEMITON [Concomitant]
     Indication: IDIOPATHIC GENERALISED EPILEPSY
     Dosage: 200 mg (2 per 1 day)
     Route: 048
     Dates: start: 20040514
  4. FLIXOTAIDE [Concomitant]
     Dosage: 250 ug (2 per 1 day s)
     Dates: start: 2008
  5. DIAZEPAM [Concomitant]
     Indication: EPILEPSY
     Dosage: 10 mg (as required)
     Route: 054

REACTIONS (4)
  - Status epilepticus [Not Recovered/Not Resolved]
  - Convulsion [Not Recovered/Not Resolved]
  - Petit mal epilepsy [Not Recovered/Not Resolved]
  - Grand mal convulsion [Not Recovered/Not Resolved]
